FAERS Safety Report 24356209 (Version 1)
Quarter: 2024Q3

REPORT INFORMATION
  Report Type: Spontaneous
  Country: US (occurrence: US)
  Receive Date: 20240924
  Receipt Date: 20240924
  Transmission Date: 20241017
  Serious: No
  Sender: BIOGEN
  Company Number: US-BIOGEN-2024BI01260076

PATIENT
  Sex: Male

DRUGS (3)
  1. VUMERITY [Suspect]
     Active Substance: DIROXIMEL FUMARATE
     Indication: Multiple sclerosis
     Dosage: TAKE 1 CAPSULE, 231MG BY MOUTH TWICE A DAY FOR 7 DAYS THEN TAKE 2 CAPSULES, 462MG BY MOUTH TWICE ...
     Route: 050
     Dates: start: 20230407, end: 202304
  2. VUMERITY [Suspect]
     Active Substance: DIROXIMEL FUMARATE
     Dosage: ALSO REPORTED 02-MAY-2023
     Route: 050
     Dates: start: 202304
  3. VUMERITY [Suspect]
     Active Substance: DIROXIMEL FUMARATE
     Dosage: HALF A DOSE
     Route: 050

REACTIONS (3)
  - Product dose omission in error [Unknown]
  - Intentional underdose [Unknown]
  - Malaise [Unknown]
